FAERS Safety Report 18903124 (Version 1)
Quarter: 2021Q1

REPORT INFORMATION
  Report Type: Spontaneous
  Country: US (occurrence: US)
  Receive Date: 20210217
  Receipt Date: 20210217
  Transmission Date: 20210420
  Serious: No
  Sender: FDA-Public Use
  Company Number: US-ELI_LILLY_AND_COMPANY-US202101013273

PATIENT
  Age: 40 Year
  Sex: Female

DRUGS (1)
  1. EMGALITY [Suspect]
     Active Substance: GALCANEZUMAB-GNLM
     Indication: MIGRAINE
     Dosage: 120 MG, UNKNOWN
     Route: 065
     Dates: start: 20201218, end: 20210122

REACTIONS (11)
  - Dyspnoea [Recovered/Resolved]
  - Nausea [Not Recovered/Not Resolved]
  - Dysuria [Not Recovered/Not Resolved]
  - Vomiting [Not Recovered/Not Resolved]
  - Pollakiuria [Not Recovered/Not Resolved]
  - Flank pain [Not Recovered/Not Resolved]
  - Cystitis [Not Recovered/Not Resolved]
  - Kidney infection [Not Recovered/Not Resolved]
  - Chills [Not Recovered/Not Resolved]
  - Injection site urticaria [Not Recovered/Not Resolved]
  - Pyrexia [Not Recovered/Not Resolved]

NARRATIVE: CASE EVENT DATE: 20210123
